FAERS Safety Report 19462938 (Version 1)
Quarter: 2021Q2

REPORT INFORMATION
  Report Type: Spontaneous
  Country: US (occurrence: US)
  Receive Date: 20210625
  Receipt Date: 20210625
  Transmission Date: 20210717
  Serious: No
  Sender: FDA-Public Use
  Company Number: US-ASTRAZENECA-2021A182938

PATIENT
  Age: 62 Year
  Sex: Female

DRUGS (2)
  1. NEXIUM 24HR [Suspect]
     Active Substance: ESOMEPRAZOLE MAGNESIUM
     Indication: DYSPEPSIA
     Dosage: 1 UNK, U
     Route: 065
     Dates: start: 20210312, end: 20210315
  2. NEXIUM 24HR [Suspect]
     Active Substance: ESOMEPRAZOLE MAGNESIUM
     Indication: DYSPEPSIA
     Dosage: UNKNOWN
     Route: 065
     Dates: start: 20210212, end: 20210312

REACTIONS (7)
  - Sensation of foreign body [Unknown]
  - Wrong technique in product usage process [Unknown]
  - Dysphagia [Unknown]
  - Pain [Unknown]
  - Eructation [Unknown]
  - Flatulence [Unknown]
  - Off label use [Unknown]

NARRATIVE: CASE EVENT DATE: 20210315
